FAERS Safety Report 5336987-2 (Version None)
Quarter: 2007Q2

REPORT INFORMATION
  Report Type: 
  Country: None (occurrence: None)
  Receive Date: 20070529
  Receipt Date: 20070423
  Transmission Date: 20071010
  Serious: Yes (Other)
  Sender: FDA-Public Use
  Company Number: US-ROCHE-444075

PATIENT
  Age: 48 Year
  Sex: Male
  Weight: 77.1 kg

DRUGS (26)
  1. PEGASYS [Suspect]
     Route: 058
     Dates: start: 20040206, end: 20040401
  2. PEGASYS [Suspect]
     Route: 058
     Dates: start: 20040423, end: 20040601
  3. PEGASYS [Suspect]
     Route: 058
     Dates: start: 20040601, end: 20040811
  4. PEGASYS [Suspect]
     Dosage: PATIENT HAS MISSED TWO INJECTIONS.
     Route: 058
  5. PEGASYS [Suspect]
     Route: 058
     Dates: end: 20050204
  6. VALIUM [Suspect]
     Indication: SOMNOLENCE
     Route: 065
     Dates: start: 20040128, end: 20040227
  7. VALIUM [Suspect]
     Route: 065
     Dates: start: 20040303, end: 20040402
  8. VALIUM [Suspect]
     Route: 065
     Dates: start: 20040521, end: 20041121
  9. VALIUM [Suspect]
     Route: 065
     Dates: start: 20050304, end: 20050904
  10. RIBAVIRIN (NON-ROCHE) [Suspect]
     Route: 048
     Dates: start: 20040206, end: 20040401
  11. RIBAVIRIN (NON-ROCHE) [Suspect]
     Route: 048
     Dates: start: 20040423, end: 20040601
  12. RIBAVIRIN (NON-ROCHE) [Suspect]
     Route: 048
     Dates: start: 20040601, end: 20040801
  13. RIBAVIRIN (NON-ROCHE) [Suspect]
     Route: 048
     Dates: end: 20050204
  14. RIBASPHERE [Suspect]
     Indication: HEPATITIS C
     Route: 048
     Dates: start: 20040501, end: 20040701
  15. PEG-INTRON [Suspect]
     Indication: HEPATITIS C
     Route: 058
     Dates: start: 20040101
  16. HYDROCODONE BITARTRATE [Suspect]
     Indication: PAIN
     Dosage: DRUG NAME REPORTED: HYDROCODONE BITARTRATE/ACETAMINOPHEN.
     Route: 048
     Dates: start: 19990101
  17. HYDROCODONE BITARTRATE [Suspect]
     Route: 048
     Dates: start: 20040128, end: 20040227
  18. HYDROCODONE BITARTRATE [Suspect]
     Route: 048
     Dates: start: 20040318, end: 20040402
  19. HYDROCODONE BITARTRATE [Suspect]
     Route: 048
     Dates: start: 20040423, end: 20040523
  20. HYDROCODONE BITARTRATE [Suspect]
     Route: 048
     Dates: start: 20040501, end: 20041121
  21. HYDROCODONE BITARTRATE [Suspect]
     Route: 048
     Dates: end: 20060210
  22. RANITIDINE [Concomitant]
  23. OXIMETAZOLINE [Concomitant]
     Dosage: NASAL SPRAY.
  24. UNSPECIFIED DRUG [Concomitant]
     Dosage: OREGANO OIL.
  25. TYLENOL [Concomitant]
  26. ASCORBIC ACID [Concomitant]

REACTIONS (33)
  - ABNORMAL SENSATION IN EYE [None]
  - AMNESIA [None]
  - ANOREXIA [None]
  - ASTHENIA [None]
  - BURNOUT SYNDROME [None]
  - BURSITIS INFECTIVE [None]
  - CERVICAL SPINAL STENOSIS [None]
  - CHEST PAIN [None]
  - CHRONIC FATIGUE SYNDROME [None]
  - CLUSTER HEADACHE [None]
  - DISTURBANCE IN ATTENTION [None]
  - DRUG INEFFECTIVE [None]
  - DYSPNOEA [None]
  - EYE PAIN [None]
  - FATIGUE [None]
  - HEADACHE [None]
  - HEART RATE DECREASED [None]
  - HYPERSOMNIA [None]
  - IMPAIRED WORK ABILITY [None]
  - INSOMNIA [None]
  - MALAISE [None]
  - MUSCULOSKELETAL PAIN [None]
  - NAUSEA [None]
  - NECK PAIN [None]
  - PAIN IN EXTREMITY [None]
  - PLATELET COUNT DECREASED [None]
  - POST-TRAUMATIC STRESS DISORDER [None]
  - SINUSITIS [None]
  - SKIN LESION [None]
  - THERMAL BURN [None]
  - UNDERDOSE [None]
  - VISION BLURRED [None]
  - WHITE BLOOD CELL COUNT DECREASED [None]
